FAERS Safety Report 17964519 (Version 2)
Quarter: 2020Q3

REPORT INFORMATION
  Report Type: Spontaneous
  Country: US (occurrence: US)
  Receive Date: 20200630
  Receipt Date: 20200708
  Transmission Date: 20201103
  Serious: Yes (Life-Threatening, Hospitalization, Other)
  Sender: FDA-Public Use
  Company Number: US-SA-2018SA240928

PATIENT

DRUGS (19)
  1. ROCURONIUM BROMIDE. [Suspect]
     Active Substance: ROCURONIUM BROMIDE
     Indication: INDUCTION OF ANAESTHESIA
     Dosage: 5 MG, 1X
     Route: 042
  2. DESFLURANE. [Suspect]
     Active Substance: DESFLURANE
     Dosage: 5.5 %, 1X
  3. LISINOPRIL. [Concomitant]
     Active Substance: LISINOPRIL
     Dosage: UNK
  4. ROCURONIUM BROMIDE. [Suspect]
     Active Substance: ROCURONIUM BROMIDE
     Dosage: 140 MG AROUND 4:10 PM
     Route: 042
  5. CEFAZOLIN [Concomitant]
     Active Substance: CEFAZOLIN
     Dosage: 1 G, ADMINISTERED AT 4:20 PM
     Route: 042
  6. METFORMIN [Concomitant]
     Active Substance: METFORMIN HYDROCHLORIDE
     Dosage: UNK
  7. FENTANYL. [Suspect]
     Active Substance: FENTANYL
     Dosage: ADMINISTERED AROUND 4:15 PM
     Route: 042
  8. SUCCINYLCHOLIN [Suspect]
     Active Substance: SUCCINYLCHOLINE CHLORIDE
     Indication: INDUCTION OF ANAESTHESIA
     Dosage: 120 MG, 1X
     Route: 042
  9. REGLAN [Concomitant]
     Active Substance: METOCLOPRAMIDE HYDROCHLORIDE
     Dosage: 10 MG
     Route: 042
  10. RANITIDINE. [Concomitant]
     Active Substance: RANITIDINE
     Route: 042
  11. MIDAZOLAM. [Suspect]
     Active Substance: MIDAZOLAM
     Indication: INDUCTION OF ANAESTHESIA
     Dosage: 2 MG, 1X
     Route: 042
  12. LIDOCAINE. [Suspect]
     Active Substance: LIDOCAINE
     Indication: GENERAL ANAESTHESIA
     Dosage: 9 ML, 1X
  13. PROPOFOL. [Suspect]
     Active Substance: PROPOFOL
     Indication: INDUCTION OF ANAESTHESIA
     Dosage: 200 MG, 1X
     Route: 042
  14. FENTANYL. [Suspect]
     Active Substance: FENTANYL
     Dosage: 250 UNK
     Route: 042
  15. DECADRON [Concomitant]
     Active Substance: DEXAMETHASONE
     Dosage: 8 MG ADMINISTERED AT 4:45 PM
     Route: 042
  16. SODIUM BICARBONATE. [Concomitant]
     Active Substance: SODIUM BICARBONATE
     Dosage: 50 MEQ, 2 AMPULES
  17. EPINEPHRINE. [Suspect]
     Active Substance: EPINEPHRINE
     Indication: GENERAL ANAESTHESIA
     Dosage: 1:100,000
  18. FENTANYL. [Suspect]
     Active Substance: FENTANYL
     Indication: INDUCTION OF ANAESTHESIA
     Dosage: 150 UG, 1X
     Route: 042
  19. DESFLURANE. [Suspect]
     Active Substance: DESFLURANE
     Indication: MAINTENANCE OF ANAESTHESIA
     Dosage: 6 %

REACTIONS (12)
  - End-tidal CO2 increased [Recovered/Resolved]
  - Hypercapnia [Recovered/Resolved]
  - Blood pressure increased [Unknown]
  - Body temperature increased [Recovered/Resolved]
  - Hyperthermia malignant [Recovered/Resolved]
  - Blood creatine phosphokinase increased [Recovered/Resolved]
  - Muscle spasms [Recovered/Resolved]
  - Hyperkalaemia [Recovered/Resolved]
  - Heart rate increased [Recovered/Resolved]
  - Condition aggravated [Recovered/Resolved]
  - Sinus tachycardia [Recovered/Resolved]
  - Rhabdomyolysis [Recovered/Resolved]
